FAERS Safety Report 9723146 (Version 2)
Quarter: 2014Q1

REPORT INFORMATION
  Report Type: Spontaneous
  Country: US (occurrence: US)
  Receive Date: 20131202
  Receipt Date: 20140121
  Transmission Date: 20141002
  Serious: No
  Sender: FDA-Public Use
  Company Number: US-PFIZER INC-2013339247

PATIENT
  Age: 20 Year
  Sex: Female
  Weight: 58.96 kg

DRUGS (7)
  1. ZOLOFT [Suspect]
     Indication: ANXIETY
     Dosage: 50 MG, 1X/DAY
     Route: 048
     Dates: start: 20131007, end: 20131123
  2. ZOLOFT [Suspect]
     Dosage: 50 MG, ALTERNATE DAY
     Route: 048
     Dates: start: 20131124, end: 20131210
  3. PREDNISONE [Suspect]
     Indication: CROHN^S DISEASE
     Dosage: 5 MG, DAILY
     Dates: start: 20131107
  4. HUMIRA [Suspect]
     Indication: CROHN^S DISEASE
     Dosage: 40 MG, Q 2 WEEKS
     Route: 058
     Dates: start: 20131016
  5. IMURAN [Concomitant]
     Indication: IMMUNOSUPPRESSANT DRUG THERAPY
     Dosage: 100 MG, 1X/DAY
     Dates: start: 20131104
  6. IMURAN [Concomitant]
     Indication: CROHN^S DISEASE
  7. ANTIVERT [Concomitant]
     Dosage: 25 MG, EVERY DAY AT 8 PM

REACTIONS (8)
  - Disorientation [Unknown]
  - Mydriasis [Unknown]
  - Dizziness [Unknown]
  - Nausea [Unknown]
  - Weight increased [Unknown]
  - Activities of daily living impaired [Unknown]
  - Fatigue [Recovered/Resolved]
  - Headache [Recovered/Resolved]
